FAERS Safety Report 24313616 (Version 2)
Quarter: 2024Q3

REPORT INFORMATION
  Report Type: Spontaneous
  Country: DE (occurrence: DE)
  Receive Date: 20240912
  Receipt Date: 20240916
  Transmission Date: 20241017
  Serious: Yes (Hospitalization)
  Sender: NOVARTIS
  Company Number: DE-DCGMA-24203818

PATIENT
  Age: 44 Year
  Sex: Male
  Weight: 115 kg

DRUGS (5)
  1. GILENYA [Suspect]
     Active Substance: FINGOLIMOD HYDROCHLORIDE
     Indication: Multiple sclerosis
     Dosage: 0.5 MG
     Route: 048
     Dates: start: 201710, end: 202403
  2. OPIPRAMOL [Concomitant]
     Active Substance: OPIPRAMOL
     Indication: Restlessness
     Dosage: 50 MG
     Route: 048
     Dates: start: 2018
  3. CANDESARTAN [Concomitant]
     Active Substance: CANDESARTAN
     Indication: Hypertension
     Dosage: 16 MG
     Route: 048
     Dates: start: 2021
  4. LEVOTHYROXINE [Concomitant]
     Active Substance: LEVOTHYROXINE\LEVOTHYROXINE SODIUM
     Indication: Hypothyroidism
     Dosage: 25 UG
     Route: 048
     Dates: start: 2023
  5. BISOPROLOL [Concomitant]
     Active Substance: BISOPROLOL\BISOPROLOL FUMARATE
     Indication: Sinus tachycardia
     Dosage: 2.5 MG
     Route: 048
     Dates: start: 2022

REACTIONS (5)
  - Rib fracture [Not Recovered/Not Resolved]
  - Syncope [Not Recovered/Not Resolved]
  - Product substitution issue [Not Recovered/Not Resolved]
  - Bronchial hyperreactivity [Not Recovered/Not Resolved]
  - Cough [Not Recovered/Not Resolved]

NARRATIVE: CASE EVENT DATE: 20240505
